FAERS Safety Report 7945779-7 (Version None)
Quarter: 2011Q4

REPORT INFORMATION
  Report Type: 
  Country: None (occurrence: None)
  Receive Date: 20111122
  Receipt Date: 20111108
  Transmission Date: 20120403
  Serious: Yes (Hospitalization, Other)
  Sender: FDA-Public Use
  Company Number: 2011MA016173

PATIENT
  Sex: Male
  Weight: 91 kg

DRUGS (25)
  1. ALLEGRA [Concomitant]
  2. LITHIUM CARBONATE [Concomitant]
  3. IV ANTIBIOTICS [Concomitant]
  4. ALBUTEROL [Concomitant]
  5. ATROVENT [Concomitant]
  6. FLONASE [Concomitant]
  7. LOPRESSOR [Concomitant]
  8. DIGOXIN [Suspect]
     Dosage: 0.2G MG;QD;PO
     Route: 048
     Dates: start: 20050730, end: 20080601
  9. ASPIRIN [Concomitant]
  10. SINGULAIR [Concomitant]
  11. SPIRIVA [Concomitant]
  12. CARDIZEM CD [Concomitant]
  13. PREDNISONE TAB [Concomitant]
  14. BRONCHODILATOR [Concomitant]
  15. POTASSIUM ACETATE [Concomitant]
  16. DEPAKOTE [Concomitant]
  17. LOVENOX [Concomitant]
  18. ZOLOFT [Concomitant]
  19. SOLU-MEDROL [Concomitant]
  20. PEPCID [Concomitant]
  21. XOPENEX [Concomitant]
  22. CARDURA [Concomitant]
  23. COZAAR [Concomitant]
  24. MAXZIDE [Concomitant]
  25. STEROIDS [Concomitant]

REACTIONS (16)
  - DYSPNOEA [None]
  - BIPOLAR DISORDER [None]
  - HEART INJURY [None]
  - MULTIPLE INJURIES [None]
  - PAIN [None]
  - ASTHMA [None]
  - WHEEZING [None]
  - CHRONIC SINUSITIS [None]
  - ANXIETY [None]
  - CONDITION AGGRAVATED [None]
  - HYPERTENSION [None]
  - BRONCHITIS [None]
  - UNEVALUABLE EVENT [None]
  - MENTAL IMPAIRMENT [None]
  - COUGH [None]
  - PLEURITIC PAIN [None]
